FAERS Safety Report 22399574 (Version 1)
Quarter: 2023Q2

REPORT INFORMATION
  Report Type: Spontaneous
  Country: JP (occurrence: JP)
  Receive Date: 20230602
  Receipt Date: 20230602
  Transmission Date: 20230722
  Serious: Yes (Other)
  Sender: FDA-Public Use
  Company Number: JP-VIATRISJAPAN-2023M1045680AA

PATIENT
  Age: 57 Year
  Sex: Male

DRUGS (3)
  1. EPLERENONE [Suspect]
     Active Substance: EPLERENONE
     Indication: Hypertension
     Dosage: 50 MILLIGRAM
     Route: 048
     Dates: start: 20211119, end: 20211217
  2. ADALAT CC [Concomitant]
     Active Substance: NIFEDIPINE
     Indication: Hypertension
     Dosage: UNK
     Route: 065
  3. AVAPRO [Concomitant]
     Active Substance: IRBESARTAN
     Indication: Hypertension
     Dosage: UNK
     Route: 065

REACTIONS (5)
  - Hyperkalaemia [Recovered/Resolved]
  - Physical deconditioning [Unknown]
  - Pyrexia [Unknown]
  - Dehydration [Unknown]
  - Proteinuria [Unknown]
